FAERS Safety Report 24004279 (Version 2)
Quarter: 2024Q2

REPORT INFORMATION
  Report Type: Spontaneous
  Country: US (occurrence: US)
  Receive Date: 20240624
  Receipt Date: 20240624
  Transmission Date: 20240716
  Serious: Yes (Hospitalization)
  Sender: FDA-Public Use
  Company Number: US-ROCHE-10000004017

PATIENT
  Age: 85 Year
  Sex: Male

DRUGS (1)
  1. TNKASE [Suspect]
     Active Substance: TENECTEPLASE
     Indication: Ischaemic stroke
     Dosage: SINGLE DOSE
     Route: 042
     Dates: start: 20240610, end: 20240610

REACTIONS (2)
  - Haemorrhagic transformation stroke [Not Recovered/Not Resolved]
  - Off label use [Unknown]

NARRATIVE: CASE EVENT DATE: 20240610
